FAERS Safety Report 5074834-7 (Version None)
Quarter: 2006Q3

REPORT INFORMATION
  Report Type: 
  Country: None (occurrence: None)
  Receive Date: 20060809
  Receipt Date: 20060731
  Transmission Date: 20061208
  Serious: Yes (Hospitalization)
  Sender: FDA-Public Use
  Company Number: PHBS2006IT11618

PATIENT
  Age: 67 Year
  Sex: Male

DRUGS (9)
  1. PHENYTOIN [Suspect]
     Indication: EPILEPSY
     Dosage: 2 POSOLOGIC UNITS
     Route: 048
     Dates: start: 20060322
  2. PHENYTOIN [Suspect]
     Route: 048
     Dates: start: 20060719
  3. FRISIUM [Suspect]
     Indication: EPILEPSY
     Dosage: 10 MG/DAY
     Route: 048
     Dates: start: 20060322
  4. FRISIUM [Suspect]
     Route: 048
     Dates: start: 20060719
  5. TRIATEC HCT [Concomitant]
     Dosage: 2 POSOLOGIC UNITS
     Route: 065
  6. ADALAT [Concomitant]
     Dosage: 1 POSOLOGIC UNIT
     Route: 048
  7. TRENTAL [Concomitant]
     Dosage: 2 POSOLOGIC UNITS
     Route: 048
  8. TEGRETOL [Suspect]
     Indication: EPILEPSY
     Dosage: 800 MG/DAY
     Route: 048
     Dates: start: 20060322
  9. TEGRETOL [Suspect]
     Route: 048
     Dates: start: 20060719

REACTIONS (5)
  - ASTHENIA [None]
  - HYPOKINESIA [None]
  - OVERDOSE [None]
  - SOPOR [None]
  - SPEECH DISORDER [None]
